FAERS Safety Report 16014774 (Version 1)
Quarter: 2019Q1

REPORT INFORMATION
  Report Type: Spontaneous
  Country: MY (occurrence: MY)
  Receive Date: 20190227
  Receipt Date: 20190227
  Transmission Date: 20190418
  Serious: Yes (Hospitalization, Other)
  Sender: FDA-Public Use
  Company Number: MY-VIFOR (INTERNATIONAL) INC.-VIT-2019-01657

PATIENT
  Age: 55 Year
  Sex: Female

DRUGS (1)
  1. MIRCERA [Suspect]
     Active Substance: METHOXY POLYETHYLENE GLYCOL-EPOETIN BETA
     Indication: NEPHROGENIC ANAEMIA
     Route: 042
     Dates: start: 20190202, end: 20190202

REACTIONS (5)
  - Vision blurred [Recovered/Resolved]
  - Dyspnoea [Unknown]
  - Pruritus [Unknown]
  - Insomnia [Unknown]
  - Pruritus generalised [Recovered/Resolved]

NARRATIVE: CASE EVENT DATE: 201902
